FAERS Safety Report 18100750 (Version 2)
Quarter: 2020Q3

REPORT INFORMATION
  Report Type: Spontaneous
  Country: GB (occurrence: GB)
  Receive Date: 20200731
  Receipt Date: 20200828
  Transmission Date: 20201103
  Serious: Yes (Other)
  Sender: FDA-Public Use
  Company Number: GB-ASCEND THERAPEUTICS US, LLC-2088017

PATIENT
  Age: 58 Year
  Sex: Female

DRUGS (3)
  1. OESTRODOSE (ESTRADIOL), (95), UNKNOWN?PL 08747/0727 [Suspect]
     Active Substance: ESTRADIOL
     Route: 065
     Dates: start: 20200606
  2. ESTROGEL [Suspect]
     Active Substance: ESTRADIOL
  3. ESTROGEL [Suspect]
     Active Substance: ESTRADIOL
     Indication: HORMONE REPLACEMENT THERAPY
     Route: 065
     Dates: start: 20200606

REACTIONS (3)
  - Product substitution issue [Unknown]
  - Drug ineffective [Unknown]
  - Menopausal symptoms [Recovering/Resolving]

NARRATIVE: CASE EVENT DATE: 20200606
